FAERS Safety Report 21926158 (Version 1)
Quarter: 2023Q1

REPORT INFORMATION
  Report Type: Spontaneous
  Country: GB (occurrence: GB)
  Receive Date: 20230130
  Receipt Date: 20230130
  Transmission Date: 20230418
  Serious: Yes (Other)
  Sender: FDA-Public Use
  Company Number: None

PATIENT
  Age: 53 Year
  Sex: Female
  Weight: 77 kg

DRUGS (28)
  1. DOXYCYCLINE [Suspect]
     Active Substance: DOXYCYCLINE
     Indication: Product used for unknown indication
     Dosage: TWO CAPSULES TO BE TAKEN IMMEDIATELY THEN ONE
     Route: 048
     Dates: start: 20221104, end: 20221111
  2. AMOXICILLIN [Concomitant]
     Active Substance: AMOXICILLIN
     Dosage: 1 DOSAGE FORM, TID
     Route: 065
     Dates: start: 20221207, end: 20221214
  3. AZELASTINE [Concomitant]
     Active Substance: AZELASTINE
     Dosage: 2 DOSAGE FORM, BID PUFF INTO EACH NOSTRIL
     Route: 045
     Dates: start: 20220531
  4. BETNOVATE [Concomitant]
     Active Substance: BETAMETHASONE
     Dosage: 1 DOSAGE FORM, BID APPLY
     Route: 065
     Dates: start: 20190208
  5. CEFACLOR [Concomitant]
     Active Substance: CEFACLOR
     Dosage: 1 DOSAGE FORM, BID
     Route: 065
     Dates: start: 20221111, end: 20221118
  6. CHLORAMPHENICOL [Concomitant]
     Active Substance: CHLORAMPHENICOL
     Dosage: 1 GTT DROPS, QID INTO THE AFFECTED EYE(S)
     Dates: start: 20221207, end: 20221214
  7. FENBID [Concomitant]
     Indication: Pain
     Dosage: 1 DOSAGE FORM, BID APPLY
     Route: 065
     Dates: start: 20190430
  8. FERROUS FUMARATE [Concomitant]
     Active Substance: FERROUS FUMARATE
     Dosage: 1 DOSAGE FORM, QD
     Route: 065
     Dates: start: 20171109
  9. HYDROCORTISONE [Concomitant]
     Active Substance: HYDROCORTISONE
     Dosage: 1 DOSAGE FORM, BID APPLIED TO THE AFFECTED AREA(S) TWICE A DAY
     Route: 065
     Dates: start: 20230118
  10. HYALURONATE SODIUM [Concomitant]
     Active Substance: HYALURONATE SODIUM
     Dosage: 1 DOSAGE FORM, QID
     Route: 065
     Dates: start: 20190329
  11. INCRUSE ELLIPTA [Concomitant]
     Active Substance: UMECLIDINIUM BROMIDE
     Dosage: 1 DOSAGE FORM, QD ASD
     Route: 055
     Dates: start: 20221207, end: 20230106
  12. INSTILLAGEL [Concomitant]
     Active Substance: CHLORHEXIDINE GLUCONATE\LIDOCAINE HYDROCHLORIDE
     Dosage: UNK USE AS DIRECTED
     Route: 065
     Dates: start: 20230118, end: 20230119
  13. LOSARTAN [Concomitant]
     Active Substance: LOSARTAN
     Dosage: 1 DOSAGE FORM, QD
     Route: 065
     Dates: start: 20180517
  14. METFORMIN [Concomitant]
     Active Substance: METFORMIN HYDROCHLORIDE
     Dosage: 1 DOSAGE FORM, BID
     Route: 065
     Dates: start: 20210203
  15. MONTELUKAST [Concomitant]
     Active Substance: MONTELUKAST SODIUM
     Dosage: 1 DOSAGE FORM, PM AT NIGHT
     Route: 065
     Dates: start: 20130822
  16. MORPHINE SULFATE [Concomitant]
     Active Substance: MORPHINE SULFATE
     Dosage: TAKE ONE 5ML SPOONFUL (10MG) TO TWO 5ML SPOONFU
     Route: 065
     Dates: start: 20190912
  17. ORLISTAT [Concomitant]
     Active Substance: ORLISTAT
     Dosage: 1 DOSAGE FORM, TID
     Route: 065
     Dates: start: 20210805, end: 20230113
  18. PREDNISOLONE [Concomitant]
     Active Substance: PREDNISOLONE
     Dosage: 8 DOSAGE FORM, AM IN THE MORN
     Route: 065
     Dates: start: 20221214, end: 20221221
  19. PROCTOSEDYL [Concomitant]
     Active Substance: DIBUCAINE HYDROCHLORIDE\HYDROCORTISONE
     Dosage: UNK USE AS DIRECTED
     Route: 065
     Dates: start: 20230118
  20. ALBUTEROL [Concomitant]
     Active Substance: ALBUTEROL
     Dosage: 2 DOSAGE FORM AS NECESSARY
     Route: 055
     Dates: start: 20220901
  21. DIBUCAINE HYDROCHLORIDE\PREDNISOLONE [Concomitant]
     Active Substance: DIBUCAINE HYDROCHLORIDE\PREDNISOLONE
     Dosage: 1 DOSAGE FORM, QD
     Route: 054
     Dates: start: 20230119
  22. SERETIDE [Concomitant]
     Active Substance: FLUTICASONE PROPIONATE\SALMETEROL XINAFOATE
     Dosage: 2 DOSAGE FORM, BID
     Route: 055
     Dates: start: 20220921
  23. SERTRALINE [Concomitant]
     Active Substance: SERTRALINE HYDROCHLORIDE
     Dosage: 1 DOSAGE FORM, QD
     Route: 065
     Dates: start: 20160607
  24. SPIRIVA [Concomitant]
     Active Substance: TIOTROPIUM BROMIDE MONOHYDRATE
     Dosage: 2 DOSAGE FORM, QD PUFFS
     Route: 065
     Dates: start: 20230104
  25. SPIRONOLACTONE [Concomitant]
     Active Substance: SPIRONOLACTONE
     Dosage: 1 DOSAGE FORM, QD
     Route: 065
     Dates: start: 20200127
  26. TIOTROPIUM [Concomitant]
     Active Substance: TIOTROPIUM
     Dosage: 1 DOSAGE FORM, QD
     Route: 055
     Dates: start: 20221123
  27. TOPIRAMATE [Concomitant]
     Active Substance: TOPIRAMATE
     Dosage: 1 DOSAGE FORM, PM AT NIGHT
     Route: 065
     Dates: start: 20150918
  28. CARBOMER [Concomitant]
     Active Substance: CARBOMER
     Dosage: 1 GTT DROPS AS NECESSARY IN THE AFFECTED EYE(S)
     Dates: start: 20210118

REACTIONS (2)
  - Lip swelling [Recovered/Resolved]
  - Rash [Unknown]
